FAERS Safety Report 8924899 (Version 1)
Quarter: 2012Q4

REPORT INFORMATION
  Report Type: Spontaneous
  Country: KP (occurrence: None)
  Receive Date: 20121116
  Receipt Date: 20121116
  Transmission Date: 20130627
  Serious: Yes (Hospitalization, Other)
  Sender: FDA-Public Use
  Company Number: 2012P1063786

PATIENT
  Age: 62 Year
  Sex: Female

DRUGS (3)
  1. HEPARIN [Suspect]
     Indication: THROMBOSIS
     Dosage: 3600  UNIT  
12  UNIT/KG/HOUR
  2. ASPIRIN [Concomitant]
  3. CLOPIDOGREL [Concomitant]

REACTIONS (2)
  - Thrombosis in device [None]
  - Heparin-induced thrombocytopenia [None]
